FAERS Safety Report 9740889 (Version 1)
Quarter: 2013Q4

REPORT INFORMATION
  Report Type: Spontaneous
  Country: GB (occurrence: GB)
  Receive Date: 20131209
  Receipt Date: 20131209
  Transmission Date: 20140711
  Serious: Yes (Life-Threatening, Hospitalization)
  Sender: FDA-Public Use
  Company Number: GB-BANPHARM-20131909

PATIENT
  Age: 5 Day
  Sex: Male
  Weight: .87 kg

DRUGS (3)
  1. IBUPROFEN UNKNOWN PRODUCT [Suspect]
     Indication: PATENT DUCTUS ARTERIOSUS
     Dates: start: 20131108, end: 20131110
  2. BENZYLPENICILLIN [Concomitant]
  3. GENTAMICIN [Concomitant]

REACTIONS (1)
  - Intestinal perforation [Recovered/Resolved with Sequelae]
